FAERS Safety Report 9714538 (Version 2)
Quarter: 2013Q4

REPORT INFORMATION
  Report Type: Spontaneous
  Country: FR (occurrence: FR)
  Receive Date: 20131126
  Receipt Date: 20131206
  Transmission Date: 20140711
  Serious: Yes (Death, Life-Threatening, Hospitalization, Other)
  Sender: FDA-Public Use
  Company Number: FR-ASTRAZENECA-2013SE85755

PATIENT
  Age: 27463 Day
  Sex: Male

DRUGS (15)
  1. INEXIUM [Suspect]
     Route: 048
  2. INEXIUM IV [Suspect]
     Indication: STRESS ULCER
     Route: 042
     Dates: start: 20131025
  3. CIFLOX [Suspect]
     Indication: INTERSTITIAL LUNG DISEASE
     Route: 042
     Dates: start: 20131101, end: 20131106
  4. LASILIX [Suspect]
     Indication: PRODUCT USED FOR UNKNOWN INDICATION
     Route: 042
     Dates: start: 20131025, end: 20131106
  5. ASPEGIC [Suspect]
     Indication: PRODUCT USED FOR UNKNOWN INDICATION
     Route: 042
     Dates: start: 20131025
  6. ROVAMYCINE [Suspect]
     Indication: INTERSTITIAL LUNG DISEASE
     Dosage: 1.5 MIU 3 TIMES A DAY
     Route: 042
     Dates: start: 20131025
  7. TIENAM [Suspect]
     Indication: INTERSTITIAL LUNG DISEASE
     Route: 042
     Dates: start: 20131030
  8. SOLUMEDROL [Suspect]
     Indication: PRODUCT USED FOR UNKNOWN INDICATION
     Route: 042
     Dates: start: 20131026
  9. BISOPROLOL [Concomitant]
  10. KARDEGIC [Concomitant]
     Dosage: 75 MG AT MIDDAY
  11. ALLOPURINOL [Concomitant]
  12. ZOLOFT [Concomitant]
  13. FORTIMEL [Concomitant]
  14. FLAGYL [Concomitant]
     Indication: INTERSTITIAL LUNG DISEASE
  15. ROCEPHINE [Concomitant]
     Indication: INTERSTITIAL LUNG DISEASE

REACTIONS (7)
  - Pseudomonas test positive [Unknown]
  - Hemiparesis [Unknown]
  - Ischaemic stroke [Unknown]
  - Acute respiratory failure [Unknown]
  - Multi-organ failure [Unknown]
  - Death [Fatal]
  - Cholestasis [Unknown]
